FAERS Safety Report 7429591-3 (Version None)
Quarter: 2011Q2

REPORT INFORMATION
  Report Type: 
  Country: None (occurrence: None)
  Receive Date: 20110421
  Receipt Date: 20110415
  Transmission Date: 20111010
  Serious: Yes (Hospitalization)
  Sender: FDA-Public Use
  Company Number: B0693194A

PATIENT
  Age: 60 Year
  Sex: Male

DRUGS (1)
  1. AVANDIA [Suspect]
     Dosage: 4MG PER DAY
     Route: 048
     Dates: start: 20011001, end: 20070601

REACTIONS (10)
  - VENTRICULAR FIBRILLATION [None]
  - CARDIAC DISORDER [None]
  - CARDIAC FAILURE CONGESTIVE [None]
  - MYOCARDIAL INFARCTION [None]
  - CORONARY ARTERY DISEASE [None]
  - CARDIAC ARREST [None]
  - ATRIOVENTRICULAR BLOCK COMPLETE [None]
  - VENTRICULAR TACHYCARDIA [None]
  - ATRIAL FLUTTER [None]
  - ATRIAL FIBRILLATION [None]
